FAERS Safety Report 5508875-X (Version None)
Quarter: 2007Q4

REPORT INFORMATION
  Report Type: 
  Country: None (occurrence: None)
  Receive Date: 20071105
  Receipt Date: 20071105
  Transmission Date: 20080405
  Serious: No
  Sender: FDA-Public Use
  Company Number: None

PATIENT
  Age: 38 Year
  Sex: Male
  Weight: 83.12 kg

DRUGS (2)
  1. PAXIL [Suspect]
     Indication: ANXIETY
     Dosage: 0.5 - 1TAB DAILY PO
     Route: 048
     Dates: start: 20040101, end: 20070101
  2. PAXIL [Suspect]
     Indication: STRESS
     Dosage: 0.5 - 1TAB DAILY PO
     Route: 048
     Dates: start: 20040101, end: 20070101

REACTIONS (2)
  - DRUG INEFFECTIVE [None]
  - PHARMACEUTICAL PRODUCT COMPLAINT [None]
